FAERS Safety Report 7010207-5 (Version None)
Quarter: 2010Q3

REPORT INFORMATION
  Report Type: 
  Country: None (occurrence: None)
  Receive Date: 20100923
  Receipt Date: 20100527
  Transmission Date: 20110219
  Serious: No
  Sender: FDA-Public Use
  Company Number: US-BAUSCH-2010BL002843

PATIENT
  Age: 70 Year
  Sex: Female

DRUGS (4)
  1. ERYTHROCIN 1% [Suspect]
     Indication: POSTOPERATIVE CARE
     Route: 047
     Dates: start: 20100525, end: 20100526
  2. ZYMAR [Concomitant]
     Indication: CATARACT OPERATION
     Route: 047
     Dates: start: 20100524
  3. XIBROM [Concomitant]
     Indication: CATARACT OPERATION
     Route: 047
     Dates: start: 20100522
  4. PRED FORTE [Concomitant]
     Indication: CATARACT OPERATION
     Route: 047
     Dates: start: 20100524

REACTIONS (5)
  - EYE IRRITATION [None]
  - EYE PAIN [None]
  - EYE PRURITUS [None]
  - EYELID IRRITATION [None]
  - EYELIDS PRURITUS [None]
